FAERS Safety Report 17142472 (Version 2)
Quarter: 2019Q4

REPORT INFORMATION
  Report Type: Spontaneous
  Country: GB (occurrence: GB)
  Receive Date: 20191211
  Receipt Date: 20191220
  Transmission Date: 20200122
  Serious: Yes (Other)
  Sender: FDA-Public Use
  Company Number: GB-PFIZER INC-2019528506

PATIENT
  Age: 24 Year
  Sex: Female

DRUGS (6)
  1. ETOPOSIDE. [Suspect]
     Active Substance: ETOPOSIDE
     Dosage: SINGLE COURSE OF HIGH-DOSE
  2. CISPLATIN. [Suspect]
     Active Substance: CISPLATIN
     Indication: OVARIAN GERM CELL TUMOUR MIXED
     Dosage: ONE CYCLE OF CONVENTIONAL-DOSE
  3. IFOSFAMIDE. [Suspect]
     Active Substance: IFOSFAMIDE
     Indication: OVARIAN GERM CELL TUMOUR MIXED
     Dosage: ONE CYCLE OF CONVENTIONAL-DOSE
  4. ETOPOSIDE. [Suspect]
     Active Substance: ETOPOSIDE
     Indication: OVARIAN GERM CELL TUMOUR MIXED
     Dosage: ONE CYCLE OF CONVENTIONAL-DOSE
  5. CARBOPLATIN. [Suspect]
     Active Substance: CARBOPLATIN
     Indication: OVARIAN GERM CELL TUMOUR MIXED
     Dosage: ONE CYCLE OF CONVENTIONAL-DOSE
  6. CARBOPLATIN. [Suspect]
     Active Substance: CARBOPLATIN
     Dosage: SINGLE COURSE OF HIGH-DOSE

REACTIONS (1)
  - Thymus enlargement [Recovered/Resolved]
